FAERS Safety Report 6752313-6 (Version None)
Quarter: 2010Q2

REPORT INFORMATION
  Report Type: 
  Country: None (occurrence: None)
  Receive Date: 20100601
  Receipt Date: 20100601
  Transmission Date: 20101027
  Serious: Yes (Disabling)
  Sender: FDA-Public Use
  Company Number: None

PATIENT
  Sex: Female
  Weight: 120.2032 kg

DRUGS (1)
  1. IMPLANON [Suspect]
     Indication: CONTRACEPTION
     Dates: start: 20090301, end: 20100527

REACTIONS (6)
  - BACK PAIN [None]
  - CHEST PAIN [None]
  - DEVICE BREAKAGE [None]
  - GROIN PAIN [None]
  - HORMONE LEVEL ABNORMAL [None]
  - PAIN IN EXTREMITY [None]
